FAERS Safety Report 6058071-5 (Version None)
Quarter: 2009Q1

REPORT INFORMATION
  Report Type: 
  Country: None (occurrence: None)
  Receive Date: 20090127
  Receipt Date: 20090116
  Transmission Date: 20090719
  Serious: Yes (Hospitalization)
  Sender: FDA-Public Use
  Company Number: CHPA2009US00840

PATIENT
  Age: 49 Year
  Sex: Female
  Weight: 113.4 kg

DRUGS (3)
  1. BENEFIBER W/WHEAT DEXTRIN (WHEAT DEXTRIN) CHEWABLE [Suspect]
     Indication: CONSTIPATION
     Dosage: 3330 MG, QD, ORAL
     Route: 002
     Dates: start: 20090108, end: 20090108
  2. SYNTHROID [Concomitant]
  3. NORFLOX              (NORFLOXACIN) [Concomitant]

REACTIONS (7)
  - BURNING SENSATION [None]
  - EYE SWELLING [None]
  - HYPERSENSITIVITY [None]
  - LIP SWELLING [None]
  - NAUSEA [None]
  - PHARYNGEAL OEDEMA [None]
  - VOMITING [None]
